FAERS Safety Report 12682678 (Version 1)
Quarter: 2016Q3

REPORT INFORMATION
  Report Type: Spontaneous
  Country: IT (occurrence: IT)
  Receive Date: 20160825
  Receipt Date: 20160825
  Transmission Date: 20161109
  Serious: Yes (Disabling)
  Sender: FDA-Public Use
  Company Number: IT-009507513-1608ITA011646

PATIENT
  Age: 67 Year
  Sex: Female

DRUGS (2)
  1. DIFOSFONAL [Suspect]
     Active Substance: CLODRONATE DISODIUM
     Indication: OSTEOPOROSIS
     Dosage: 100 MG, CYCLICAL
     Dates: start: 19900101, end: 20120101
  2. FOSAMAX [Suspect]
     Active Substance: ALENDRONATE SODIUM
     Indication: OSTEOPOROSIS
     Dosage: 70 MG, CYCLICAL
     Route: 048
     Dates: start: 20000101, end: 20120101

REACTIONS (3)
  - Impaired healing [Unknown]
  - Osteonecrosis [Unknown]
  - Tooth extraction [Unknown]

NARRATIVE: CASE EVENT DATE: 20120401
